FAERS Safety Report 8358629-4 (Version None)
Quarter: 2012Q2

REPORT INFORMATION
  Report Type: 
  Country: None (occurrence: None)
  Receive Date: 20120514
  Receipt Date: 20120510
  Transmission Date: 20120825
  Serious: Yes (Death)
  Sender: FDA-Public Use
  Company Number: DE-ROCHE-1068223

PATIENT
  Sex: Male

DRUGS (7)
  1. MABTHERA [Suspect]
     Indication: NON-HODGKIN'S LYMPHOMA
  2. DEXAMETHASONE [Suspect]
     Indication: NON-HODGKIN'S LYMPHOMA
  3. PREDNISONE TAB [Suspect]
     Indication: NON-HODGKIN'S LYMPHOMA
  4. FILGRASTIM [Suspect]
     Indication: NON-HODGKIN'S LYMPHOMA
  5. VINDESINE [Suspect]
     Indication: NON-HODGKIN'S LYMPHOMA
  6. CYCLOPHOSPHAMIDE [Suspect]
     Indication: NON-HODGKIN'S LYMPHOMA
  7. DOXORUBICIN HCL [Suspect]
     Indication: NON-HODGKIN'S LYMPHOMA

REACTIONS (1)
  - DEATH [None]
